FAERS Safety Report 25810515 (Version 1)
Quarter: 2025Q3

REPORT INFORMATION
  Report Type: Spontaneous
  Country: US (occurrence: US)
  Receive Date: 20250917
  Receipt Date: 20250917
  Transmission Date: 20251021
  Serious: Yes (Other)
  Sender: COOPERSURGICAL
  Company Number: US-COOPERSURGICAL, INC.-2025CPS006621

PATIENT
  Age: 31 Year
  Sex: Female
  Weight: 86.168 kg

DRUGS (1)
  1. PARAGARD T 380A [Suspect]
     Active Substance: COPPER
     Indication: Contraception
     Route: 015
     Dates: start: 20111205

REACTIONS (26)
  - Surgery [Recovered/Resolved]
  - Device breakage [Recovered/Resolved]
  - Foreign body in reproductive tract [Recovered/Resolved]
  - Complication of device removal [Recovered/Resolved]
  - Embedded device [Recovered/Resolved]
  - Pollakiuria [Recovered/Resolved]
  - Urinary incontinence [Recovered/Resolved]
  - Anxiety [Unknown]
  - Dermatitis contact [Unknown]
  - Complication of device insertion [Recovered/Resolved]
  - Hot flush [Unknown]
  - Libido decreased [Unknown]
  - Post procedural drainage [Recovered/Resolved]
  - Post procedural pruritus [Unknown]
  - Pelvic adhesions [Unknown]
  - Pelvic pain [Recovered/Resolved]
  - Pain [Unknown]
  - Discomfort [Unknown]
  - Back pain [Unknown]
  - Heavy menstrual bleeding [Unknown]
  - Vaginal haemorrhage [Unknown]
  - Abdominal pain [Unknown]
  - Intermenstrual bleeding [Unknown]
  - Muscle spasms [Unknown]
  - Device use issue [Recovered/Resolved]
  - Off label use [Unknown]

NARRATIVE: CASE EVENT DATE: 20111205
